FAERS Safety Report 18293992 (Version 2)
Quarter: 2022Q4

REPORT INFORMATION
  Report Type: Spontaneous
  Country: DK (occurrence: DK)
  Receive Date: 20200921
  Receipt Date: 20221017
  Transmission Date: 20230112
  Serious: Yes (Hospitalization)
  Sender: FDA-Public Use
  Company Number: None

PATIENT
  Age: 39 Year
  Sex: Female

DRUGS (19)
  1. KEYTRUDA [Suspect]
     Active Substance: PEMBROLIZUMAB
     Dosage: 125 MILLIGRAM
     Route: 042
     Dates: start: 20200806
  2. KEYTRUDA [Suspect]
     Active Substance: PEMBROLIZUMAB
     Dosage: 150 MILLIGRAM
     Route: 042
     Dates: start: 20200828
  3. MIRTAZAPINE [Concomitant]
     Active Substance: MIRTAZAPINE
     Indication: Insomnia
     Dosage: 30 MILLIGRAM, QD
     Route: 048
     Dates: start: 20200618
  4. FLUCONAZOLE [Concomitant]
     Active Substance: FLUCONAZOLE
     Indication: Oral fungal infection
     Dosage: 150 MILLIGRAM, QD
     Route: 048
     Dates: start: 20200825
  5. PANTOPRAZOLE [Concomitant]
     Active Substance: PANTOPRAZOLE
     Indication: Prophylaxis against gastrointestinal ulcer
     Dosage: 40 MILLIGRAM, QD
     Route: 048
     Dates: start: 20200721
  6. SODIUM CHLORIDE [Concomitant]
     Active Substance: SODIUM CHLORIDE
     Indication: Hyponatraemia
     Dosage: 750 MILLIGRAM, QD
     Route: 048
     Dates: start: 20200810
  7. PREGABALIN [Concomitant]
     Active Substance: PREGABALIN
     Indication: Pain
     Dosage: 150 MILLIGRAM, QD
     Route: 048
     Dates: start: 20200721
  8. ESTROGENS [Concomitant]
     Active Substance: ESTROGENS
     Indication: Hormone therapy
     Dosage: 1 DOSAGE FORM, QD
     Route: 048
     Dates: start: 20200813
  9. SODIUM PICOSULFATE [Concomitant]
     Active Substance: SODIUM PICOSULFATE
     Indication: Constipation
     Dosage: 10 GTT DROPS  (1/12 MILLILITRE), QD
     Route: 048
     Dates: start: 20200818
  10. METHYLPHENIDATE HYDROCHLORIDE [Concomitant]
     Active Substance: METHYLPHENIDATE HYDROCHLORIDE
     Indication: Product used for unknown indication
     Dosage: UNK
     Route: 048
  11. MOVICOL [Concomitant]
     Active Substance: POLYETHYLENE GLYCOL 3350\POTASSIUM CHLORIDE\SODIUM BICARBONATE\SODIUM CHLORIDE
     Indication: Constipation
     Dosage: 1 DOSAGE FORM, AS  NECESSARY
     Route: 048
     Dates: start: 20200519
  12. FRAGMIN [Concomitant]
     Active Substance: DALTEPARIN SODIUM
     Indication: Thrombosis
     Dosage: STRENGTH: 25.000 ANTI-XA IE/ML; 0.6 MILLILITER, QD
     Route: 058
     Dates: start: 20200715
  13. METOCLOPRAMIDE [Concomitant]
     Active Substance: METOCLOPRAMIDE
     Indication: Nausea
     Dosage: MAXIMUM 10 MG 3 TIMES DAILY
     Route: 048
     Dates: start: 20200715, end: 20200901
  14. MOTILIUM [Concomitant]
     Active Substance: DOMPERIDONE
     Indication: Nausea
     Dosage: 30 MILLIGRAM, QD
     Route: 048
     Dates: start: 20200803
  15. MORPHINE [Concomitant]
     Active Substance: MORPHINE
     Indication: Pain
     Dosage: 120 MILLIGRAM, QD
     Route: 048
     Dates: start: 20200715
  16. LACTULOSE [Concomitant]
     Active Substance: LACTULOSE
     Indication: Constipation
     Dosage: 20 MILLILITER, QD
     Route: 048
     Dates: start: 20200616
  17. REFRESH CELLUVISC [Concomitant]
     Active Substance: CARBOXYMETHYLCELLULOSE SODIUM
     Indication: Dry eye
     Dosage: 1 GTT DROPS, (1/12 MILLILITRE), AS NECESSARY
     Route: 050
     Dates: start: 20200805
  18. OXYCODONE [Concomitant]
     Active Substance: OXYCODONE
     Indication: Pain
     Dosage: STRENGTH: VARIATION DOSAGE: VARIATION
     Route: 048
     Dates: start: 20200805
  19. METHADONE [Concomitant]
     Active Substance: METHADONE HYDROCHLORIDE
     Indication: Pain
     Dosage: 15 MILLIGRAM, QD
     Route: 048
     Dates: start: 20200519

REACTIONS (3)
  - Blood creatinine increased [Not Recovered/Not Resolved]
  - Prerenal failure [Not Recovered/Not Resolved]
  - Renal failure [Not Recovered/Not Resolved]

NARRATIVE: CASE EVENT DATE: 20200901
